FAERS Safety Report 23570819 (Version 1)
Quarter: 2024Q1

REPORT INFORMATION
  Report Type: Spontaneous
  Country: US (occurrence: None)
  Receive Date: 20240226
  Receipt Date: 20240226
  Transmission Date: 20240410
  Serious: No
  Sender: FDA-Public Use
  Company Number: None

PATIENT
  Age: 53 Year
  Sex: Female
  Weight: 86.18 kg

DRUGS (5)
  1. SUMATRIPTAN [Suspect]
     Active Substance: SUMATRIPTAN
     Indication: Migraine
     Dosage: FREQUENCY : AS NEEDED;?
     Route: 048
     Dates: start: 2008, end: 2014
  2. UBRELVY [Concomitant]
     Active Substance: UBROGEPANT
  3. VITAMINS [Concomitant]
     Active Substance: VITAMINS
  4. PROBIOTICS NOS [Interacting]
     Active Substance: PROBIOTICS NOS
  5. ASHWAGANDHE [Concomitant]

REACTIONS (5)
  - Dizziness [None]
  - Gait disturbance [None]
  - Nausea [None]
  - Disturbance in attention [None]
  - Impaired work ability [None]

NARRATIVE: CASE EVENT DATE: 20120101
